FAERS Safety Report 15332424 (Version 1)
Quarter: 2018Q3

REPORT INFORMATION
  Report Type: Spontaneous
  Country: US (occurrence: US)
  Receive Date: 20180829
  Receipt Date: 20180829
  Transmission Date: 20181010
  Serious: Yes (Other)
  Sender: FDA-Public Use
  Company Number: US-GLAXOSMITHKLINE-US2018153542

PATIENT
  Sex: Male

DRUGS (2)
  1. LAMICTAL XR [Suspect]
     Active Substance: LAMOTRIGINE
     Indication: GENERALISED TONIC-CLONIC SEIZURE
     Dosage: 300 MG, BID
     Dates: start: 20180123
  2. LAMICTAL IR [Concomitant]

REACTIONS (10)
  - Dysphemia [Unknown]
  - Disorientation [Unknown]
  - Petit mal epilepsy [Unknown]
  - Amnesia [Unknown]
  - Wrong technique in product usage process [Unknown]
  - Product availability issue [Unknown]
  - Generalised tonic-clonic seizure [Unknown]
  - Staring [Unknown]
  - Underdose [Unknown]
  - Confusional state [Unknown]
